FAERS Safety Report 12531220 (Version 2)
Quarter: 2016Q3

REPORT INFORMATION
  Report Type: Spontaneous
  Country: JP (occurrence: JP)
  Receive Date: 20160706
  Receipt Date: 20160728
  Transmission Date: 20161109
  Serious: Yes (Death, Other)
  Sender: FDA-Public Use
  Company Number: JP-PFIZER INC-2016329237

PATIENT
  Age: 65 Year
  Sex: Male
  Weight: 91.5 kg

DRUGS (19)
  1. PROPOFOL. [Interacting]
     Active Substance: PROPOFOL
     Dosage: 10 ML, UNK ((5 ML, TWICE) (AFTER THE ONSET OF THE ACUTE CIRCULATORY FAILURE)
  2. PROPOFOL. [Interacting]
     Active Substance: PROPOFOL
     Dosage: UNK (5 ML/HR)
     Dates: start: 20160623, end: 20160623
  3. PROPOFOL. [Interacting]
     Active Substance: PROPOFOL
     Dosage: UNK (18 ML/HR)
     Dates: start: 20160623, end: 20160623
  4. PROPOFOL. [Interacting]
     Active Substance: PROPOFOL
     Dosage: UNK (10 ML/HR)
     Dates: start: 20160623, end: 20160623
  5. KREMEZIN [Concomitant]
     Active Substance: ACTIVATED CHARCOAL
     Indication: DIABETES MELLITUS
     Dosage: 1.8 G, 3X/DAY
     Route: 048
  6. NIFEDIPINE. [Concomitant]
     Active Substance: NIFEDIPINE
     Indication: HYPERTENSION
     Dosage: 40 MG, 1X/DAY
     Route: 048
  7. NEXIUM [Concomitant]
     Active Substance: ESOMEPRAZOLE MAGNESIUM
     Indication: GASTROOESOPHAGEAL REFLUX DISEASE
     Dosage: 10 MG, 1X/DAY
     Route: 048
  8. PROPOFOL. [Interacting]
     Active Substance: PROPOFOL
     Dosage: UNK  (20 ML/HR)
     Dates: start: 20160623, end: 20160623
  9. PRECEDEX [Suspect]
     Active Substance: DEXMEDETOMIDINE HYDROCHLORIDE
     Indication: SEDATION
     Dosage: UNK (3 ML/HR)
     Route: 042
     Dates: start: 20160623, end: 20160623
  10. PROPOFOL. [Interacting]
     Active Substance: PROPOFOL
     Dosage: UNK (10 ML/HR)
     Dates: start: 20160623, end: 20160623
  11. CAMOSTAT MESILATE [Concomitant]
     Active Substance: CAMOSTAT MESYLATE
     Indication: PANCREATITIS
     Dosage: 900 MG, 3X/DAY
     Route: 048
  12. PROPOFOL. [Interacting]
     Active Substance: PROPOFOL
     Dosage: 30 ML/HR (ALSO REPORTED AS 27 ML/HR)
     Route: 042
     Dates: start: 20160623, end: 20160623
  13. FEBURIC [Concomitant]
     Active Substance: FEBUXOSTAT
     Indication: HYPERURICAEMIA
     Dosage: 20 MG, 1X/DAY
     Route: 065
  14. PROPOFOL. [Interacting]
     Active Substance: PROPOFOL
     Dosage: 5 ML, UNK (09:41)
     Route: 042
     Dates: start: 20160623
  15. TRAZENTA [Concomitant]
     Active Substance: LINAGLIPTIN
     Indication: DIABETES MELLITUS
     Dosage: 10 MG, 1X/DAY
     Route: 048
  16. URINMET [Concomitant]
     Indication: HYPERURICAEMIA
     Dosage: UNK (8 TABLETS (2 IN 1 DAY))
     Route: 065
  17. PROPOFOL. [Interacting]
     Active Substance: PROPOFOL
     Indication: SEDATION
     Dosage: UNK (5 - 27 ML/HR (ALSO REPORTED AS 5 - 30 ML/HR))
     Dates: start: 20160623, end: 20160623
  18. PROPOFOL. [Interacting]
     Active Substance: PROPOFOL
     Dosage: UNK (10 ML/HR)
     Dates: start: 20160623, end: 20160623
  19. PROPOFOL. [Interacting]
     Active Substance: PROPOFOL
     Dosage: UNK (5 ML/HR)
     Route: 042
     Dates: start: 20160623, end: 20160623

REACTIONS (4)
  - Acute respiratory failure [Fatal]
  - Circulatory collapse [Fatal]
  - Hypotension [Not Recovered/Not Resolved]
  - Drug interaction [Unknown]

NARRATIVE: CASE EVENT DATE: 20160623
